FAERS Safety Report 12064822 (Version 1)
Quarter: 2016Q1

REPORT INFORMATION
  Report Type: Spontaneous
  Country: US (occurrence: US)
  Receive Date: 20160210
  Receipt Date: 20160210
  Transmission Date: 20160526
  Serious: No
  Sender: FDA-Public Use
  Company Number: US-ALLERGAN-1516529US

PATIENT
  Sex: Female

DRUGS (2)
  1. GENTAMYCIN [Concomitant]
     Active Substance: GENTAMICIN
     Indication: URINARY TRACT INFECTION
     Dosage: UNK
     Dates: start: 20150818, end: 20150819
  2. BOTOX [Suspect]
     Active Substance: ONABOTULINUMTOXINA
     Indication: MIGRAINE
     Dosage: 200 UNITS, SINGLE
     Route: 030
     Dates: start: 20150810, end: 20150810

REACTIONS (6)
  - Feeling abnormal [Not Recovered/Not Resolved]
  - Paraesthesia [Not Recovered/Not Resolved]
  - Muscular weakness [Not Recovered/Not Resolved]
  - Off label use [Unknown]
  - Pain in extremity [Not Recovered/Not Resolved]
  - Urinary incontinence [Not Recovered/Not Resolved]

NARRATIVE: CASE EVENT DATE: 201508
